FAERS Safety Report 18822282 (Version 1)
Quarter: 2021Q1

REPORT INFORMATION
  Report Type: Spontaneous
  Country: US (occurrence: US)
  Receive Date: 20210202
  Receipt Date: 20210202
  Transmission Date: 20210419
  Serious: Yes (Other)
  Sender: FDA-Public Use
  Company Number: NVSC2021US011919

PATIENT
  Sex: Female

DRUGS (4)
  1. ZOFRAN [Suspect]
     Active Substance: ONDANSETRON HYDROCHLORIDE
     Indication: NAUSEA
     Dosage: UNK
     Route: 065
  2. TUCATINIB [Suspect]
     Active Substance: TUCATINIB
     Indication: BREAST CANCER FEMALE
     Dosage: UNK, BID (WITHOUT FOOD)
     Route: 065
  3. HERCEPTIN [Concomitant]
     Active Substance: TRASTUZUMAB
     Indication: PRODUCT USED FOR UNKNOWN INDICATION
     Dosage: UNK, Q3W
     Route: 041
  4. TUCATINIB [Suspect]
     Active Substance: TUCATINIB
     Dosage: UNK, BID (WITHOUT FOOD)
     Route: 065

REACTIONS (21)
  - Cough [Not Recovered/Not Resolved]
  - Herpes zoster [Unknown]
  - Red blood cell count decreased [Unknown]
  - Neuropathy peripheral [Unknown]
  - Tumour marker abnormal [Unknown]
  - Asthenia [Unknown]
  - Fatigue [Unknown]
  - Decreased appetite [Unknown]
  - Constipation [Unknown]
  - Weight decreased [Unknown]
  - Chest discomfort [Unknown]
  - Limb discomfort [Unknown]
  - Device related infection [Unknown]
  - Memory impairment [Unknown]
  - Product dose omission issue [Unknown]
  - Joint swelling [Unknown]
  - Nail disorder [Unknown]
  - Nausea [Unknown]
  - Pain [Unknown]
  - Lung disorder [Unknown]
  - Drug hypersensitivity [Unknown]
